FAERS Safety Report 23397055 (Version 1)
Quarter: 2024Q1

REPORT INFORMATION
  Report Type: Other
  Country: CN (occurrence: None)
  Receive Date: 20240112
  Receipt Date: 20240112
  Transmission Date: 20240410
  Serious: Yes (Death, Other)
  Sender: FDA-Public Use
  Company Number: CN-ROCHE-3485172

PATIENT

DRUGS (5)
  1. ATEZOLIZUMAB [Suspect]
     Active Substance: ATEZOLIZUMAB
     Indication: Lung cancer metastatic
     Route: 065
  2. SINTILIMAB [Suspect]
     Active Substance: SINTILIMAB
     Indication: Lung cancer metastatic
     Route: 065
  3. CAMRELIZUMAB [Suspect]
     Active Substance: CAMRELIZUMAB
     Indication: Lung cancer metastatic
     Route: 065
  4. PEMBROLIZUMAB [Suspect]
     Active Substance: PEMBROLIZUMAB
     Indication: Lung cancer metastatic
     Route: 065
  5. TORIPALIMAB [Suspect]
     Active Substance: TORIPALIMAB
     Indication: Lung cancer metastatic
     Route: 065

REACTIONS (29)
  - Pneumonitis [Fatal]
  - Anaemia [Unknown]
  - Decreased appetite [Unknown]
  - Neuropathy peripheral [Unknown]
  - Fatigue [Unknown]
  - Cough [Unknown]
  - Asthenia [Unknown]
  - Dyspnoea [Unknown]
  - Diarrhoea [Unknown]
  - Pyrexia [Unknown]
  - Arthralgia [Unknown]
  - Rash [Unknown]
  - Thrombocytopenia [Unknown]
  - Neutropenia [Unknown]
  - Hypothyroidism [Unknown]
  - Hypertransaminasaemia [Unknown]
  - Myositis [Unknown]
  - Skin reaction [Unknown]
  - Infusion related reaction [Unknown]
  - Alopecia [Unknown]
  - Nausea [Unknown]
  - Colitis [Unknown]
  - Constipation [Unknown]
  - Myocarditis [Unknown]
  - Vomiting [Unknown]
  - Hyperthyroidism [Unknown]
  - Nephritis [Unknown]
  - Hypophysitis [Unknown]
  - Oedema peripheral [Unknown]
